FAERS Safety Report 15789021 (Version 1)
Quarter: 2019Q1

REPORT INFORMATION
  Report Type: Spontaneous
  Country: US (occurrence: US)
  Receive Date: 20190104
  Receipt Date: 20190104
  Transmission Date: 20190417
  Serious: No
  Sender: FDA-Public Use
  Company Number: US-009507513-1812USA009796

PATIENT
  Age: 22 Year
  Sex: Female
  Weight: 134.69 kg

DRUGS (2)
  1. NEXPLANON [Suspect]
     Active Substance: ETONOGESTREL
     Dosage: UNK. ROUTE OF ADMINISTRATION: RIGHT ARM
     Route: 059
     Dates: start: 2015, end: 20181218
  2. NEXPLANON [Suspect]
     Active Substance: ETONOGESTREL
     Dosage: 1 UNIT, ROUTE OF ADMINISTRATION: RIGHT ARM
     Route: 059
     Dates: start: 20181218

REACTIONS (1)
  - Device breakage [Recovered/Resolved]
